FAERS Safety Report 23893555 (Version 1)
Quarter: 2024Q2

REPORT INFORMATION
  Report Type: Spontaneous
  Country: US (occurrence: None)
  Receive Date: 20240524
  Receipt Date: 20240524
  Transmission Date: 20240716
  Serious: No
  Sender: FDA-Public Use
  Company Number: US-ROCHE-3411413

PATIENT
  Sex: Female

DRUGS (20)
  1. ACTEMRA [Suspect]
     Active Substance: TOCILIZUMAB
     Indication: Rheumatoid arthritis
     Route: 058
  2. ACTEMRA [Suspect]
     Active Substance: TOCILIZUMAB
  3. ACTEMRA [Suspect]
     Active Substance: TOCILIZUMAB
  4. LEFLUNOMIDE [Concomitant]
     Active Substance: LEFLUNOMIDE
  5. PREDNISONE [Concomitant]
     Active Substance: PREDNISONE
  6. ATORVASTATIN [Concomitant]
     Active Substance: ATORVASTATIN
  7. CLOPIDOGREL [Concomitant]
     Active Substance: CLOPIDOGREL BISULFATE
  8. FENOFIBRATE [Concomitant]
     Active Substance: FENOFIBRATE
  9. GABAPENTIN [Concomitant]
     Active Substance: GABAPENTIN
  10. JARDIANCE [Concomitant]
     Active Substance: EMPAGLIFLOZIN
  11. LEVOTHYROXINE [Concomitant]
     Active Substance: LEVOTHYROXINE\LEVOTHYROXINE SODIUM
  12. LINZESS [Concomitant]
     Active Substance: LINACLOTIDE
  13. LISINOPRIL [Concomitant]
     Active Substance: LISINOPRIL
  14. LORAZEPAM [Concomitant]
     Active Substance: LORAZEPAM
  15. LYRICA [Concomitant]
     Active Substance: PREGABALIN
  16. METFORMIN HYDROCHLORIDE [Concomitant]
     Active Substance: METFORMIN HYDROCHLORIDE
  17. METHOCARBAMOL [Concomitant]
     Active Substance: METHOCARBAMOL
  18. OMEPRAZOLE [Concomitant]
     Active Substance: DONEPEZIL HYDROCHLORIDE\OMEPRAZOLE\OMEPRAZOLE MAGNESIUM
  19. TOPIRAMATE [Concomitant]
     Active Substance: TOPIRAMATE
  20. TRAMADOL HCL [Concomitant]
     Active Substance: TRAMADOL HYDROCHLORIDE

REACTIONS (2)
  - Product storage error [Unknown]
  - No adverse event [Unknown]
